FAERS Safety Report 4555474-2 (Version None)
Quarter: 2004Q4

REPORT INFORMATION
  Report Type: 
  Country: None (occurrence: None)
  Receive Date: 20041217
  Receipt Date: 20041003
  Transmission Date: 20050328
  Serious: Yes (Other)
  Sender: FDA-Public Use
  Company Number: PHEH2004US10672

PATIENT
  Sex: Female

DRUGS (2)
  1. SANDOSTATIN [Suspect]
     Indication: CARCINOID SYNDROME
     Dates: start: 20040801
  2. SANDOSTATIN LAR [Suspect]
     Indication: CARCINOID SYNDROME
     Dates: start: 20040801

REACTIONS (5)
  - ARTHRALGIA [None]
  - JOINT SWELLING [None]
  - RHEUMATOID ARTHRITIS [None]
  - RHEUMATOID FACTOR INCREASED [None]
  - TRANSAMINASES INCREASED [None]
